FAERS Safety Report 14794174 (Version 3)
Quarter: 2018Q3

REPORT INFORMATION
  Report Type: Spontaneous
  Country: DE (occurrence: DE)
  Receive Date: 20180423
  Receipt Date: 20180817
  Transmission Date: 20181010
  Serious: Yes (Hospitalization, Other)
  Sender: FDA-Public Use
  Company Number: PHHY2018DE070161

PATIENT
  Sex: Male
  Weight: 3.63 kg

DRUGS (1)
  1. QUETIAPINE. [Suspect]
     Active Substance: QUETIAPINE
     Indication: FOETAL EXPOSURE DURING PREGNANCY
     Dosage: MATERNAL DOSE 300 MG QD
     Route: 064

REACTIONS (3)
  - Blood pH decreased [Unknown]
  - pH body fluid decreased [Unknown]
  - Foetal exposure during pregnancy [Unknown]
